FAERS Safety Report 14083106 (Version 2)
Quarter: 2017Q4

REPORT INFORMATION
  Report Type: Spontaneous
  Country: DE (occurrence: DE)
  Receive Date: 20171013
  Receipt Date: 20171110
  Transmission Date: 20180321
  Serious: Yes (Hospitalization)
  Sender: FDA-Public Use
  Company Number: DE-TEVA-813458GER

PATIENT
  Age: 54 Year
  Sex: Female

DRUGS (12)
  1. LEFLUNOMID RATIOPHARM 20 MG TABLETS [Suspect]
     Active Substance: LEFLUNOMIDE
     Indication: RHEUMATOID ARTHRITIS
     Dosage: 20 MILLIGRAM DAILY;
     Route: 048
     Dates: start: 20170906, end: 20170916
  2. RAMILICH 5 [Concomitant]
  3. HYDROCORTISON 10 MG JENAPHARM [Concomitant]
     Dosage: LONG TERM THERAPY
  4. DEKRISTOL 1000 IU [Concomitant]
     Dosage: LONG TERM THERAPY
  5. L-THYROXIN 150 HENNING [Concomitant]
     Dosage: LONG TERM THERAPY
  6. DECOSTRIOL 0.25 [Concomitant]
     Dosage: LONG TERM THERAPY
  7. FOLSAEURE ABZ 5 MG [Concomitant]
     Dosage: LONG TERM THERAPY
  8. MELOXICAM 15 AL [Concomitant]
     Dosage: LONG TERM THERAPY
  9. PANTOPRAZOL RATIOPHARM 20 MG [Concomitant]
     Active Substance: PANTOPRAZOLE SODIUM
     Dosage: LONG TERM THERAPY
  10. ASTONIN H [Concomitant]
     Dosage: LONG TERM THERAPY
  11. METOPROLOLSUCC 1A PHARMA 47.5 MG [Concomitant]
     Dosage: LONG TERM THERAPY
  12. CHLORMENADION 2 MG FEM [Concomitant]
     Dosage: LONG TERM THERAPY

REACTIONS (5)
  - Fatigue [Not Recovered/Not Resolved]
  - Gastrointestinal disorder [Recovered/Resolved]
  - Diarrhoea [Recovered/Resolved]
  - Abdominal pain [Recovered/Resolved]
  - Hypertensive crisis [Recovered/Resolved]

NARRATIVE: CASE EVENT DATE: 20170906
